FAERS Safety Report 5154507-2 (Version None)
Quarter: 2006Q4

REPORT INFORMATION
  Report Type: 
  Country: None (occurrence: None)
  Receive Date: 20061114
  Receipt Date: 19930510
  Transmission Date: 20070319
  Serious: Yes (Death, Hospitalization, Other)
  Sender: FDA-Public Use
  Company Number: 2006121871

PATIENT
  Age: 66 Year
  Sex: Male

DRUGS (4)
  1. IRINOTECAN HCL [Suspect]
     Indication: COLON CANCER
     Dosage: 600 MG/M*2 (EVERY 3 WEEKS), INTRAVENOUS
     Route: 042
     Dates: start: 19930406, end: 19930406
  2. IRINOTECAN HCL [Suspect]
     Indication: COLON CANCER
     Dosage: 600 MG/M*2 (EVERY 3 WEEKS), INTRAVENOUS
     Route: 042
     Dates: start: 19930504, end: 19930504
  3. DEXAMETHASONE TAB [Concomitant]
  4. GINKO BILOBA (GINKGO BILOBA) [Concomitant]

REACTIONS (18)
  - ANTI-PLATELET ANTIBODY POSITIVE [None]
  - BACTERIAL INFECTION [None]
  - CARDIOGENIC SHOCK [None]
  - CENTRAL LINE INFECTION [None]
  - DEHYDRATION [None]
  - DIARRHOEA [None]
  - DRUG TOXICITY [None]
  - DYSPNOEA [None]
  - ESCHERICHIA INFECTION [None]
  - FEBRILE NEUTROPENIA [None]
  - HYPERHIDROSIS [None]
  - LACRIMATION INCREASED [None]
  - PANCREATITIS [None]
  - PARAESTHESIA [None]
  - RENAL FAILURE [None]
  - STAPHYLOCOCCAL INFECTION [None]
  - THROMBOCYTOPENIA [None]
  - WEIGHT DECREASED [None]
